FAERS Safety Report 5836582-2 (Version None)
Quarter: 2008Q3

REPORT INFORMATION
  Report Type: 
  Country: None (occurrence: None)
  Receive Date: 20080807
  Receipt Date: 20080725
  Transmission Date: 20090109
  Serious: Yes (Hospitalization)
  Sender: FDA-Public Use
  Company Number: US-BAYER-200826123NA

PATIENT
  Age: 58 Year
  Sex: Male
  Weight: 76 kg

DRUGS (12)
  1. SORAFENIB [Suspect]
     Indication: COLORECTAL CANCER METASTATIC
     Dosage: TOTAL DAILY DOSE: 200 MG  UNIT DOSE: 200 MG
     Route: 048
     Dates: start: 20080325, end: 20080505
  2. CETUXIMAB [Suspect]
     Indication: COLORECTAL CANCER METASTATIC
     Dosage: TOTAL DAILY DOSE: 400 MG/M2
     Route: 042
     Dates: start: 20080325
  3. CETUXIMAB [Suspect]
     Dosage: TOTAL DAILY DOSE: 250 MG/M2
     Route: 042
  4. CETUXIMAB [Suspect]
     Dosage: TOTAL DAILY DOSE: 250 MG/M2
     Route: 042
     Dates: end: 20080429
  5. IRINOTECAN HCL [Suspect]
     Indication: COLORECTAL CANCER METASTATIC
     Dosage: AS USED: 100 MG/M2
     Route: 042
     Dates: start: 20080101
  6. IRINOTECAN HCL [Suspect]
     Dosage: AS USED: 100 MG/M2
     Route: 042
     Dates: start: 20080101, end: 20080429
  7. LUNESTA [Concomitant]
  8. ZOFRAN [Concomitant]
  9. BENICAR [Concomitant]
  10. IMODIUM [Concomitant]
  11. MEGACE [Concomitant]
  12. ADVIL [Concomitant]

REACTIONS (3)
  - INTESTINAL FISTULA [None]
  - SMALL INTESTINAL OBSTRUCTION [None]
  - SOFT TISSUE INFECTION [None]
